FAERS Safety Report 16100621 (Version 1)
Quarter: 2019Q1

REPORT INFORMATION
  Report Type: Spontaneous
  Country: IT (occurrence: IT)
  Receive Date: 20190321
  Receipt Date: 20190321
  Transmission Date: 20190418
  Serious: Yes (Hospitalization)
  Sender: FDA-Public Use
  Company Number: IT-MYLANLABS-2019M1025493

PATIENT
  Age: 87 Year
  Sex: Male

DRUGS (7)
  1. LASIX [Concomitant]
     Active Substance: FUROSEMIDE
  2. LAEVOLAC [Concomitant]
     Active Substance: LACTULOSE
  3. AMIODARONE [Suspect]
     Active Substance: AMIODARONE
     Indication: PRODUCT USED FOR UNKNOWN INDICATION
     Dosage: 1 DOSAGE FORM, QD
     Route: 048
     Dates: start: 20180101, end: 20180808
  4. AVODART [Concomitant]
     Active Substance: DUTASTERIDE
  5. TAMSULOSIN [Concomitant]
     Active Substance: TAMSULOSIN
     Dosage: UNK
  6. CLEXANE [Concomitant]
     Active Substance: ENOXAPARIN SODIUM
  7. LANSOX [Concomitant]
     Active Substance: LANSOPRAZOLE

REACTIONS (4)
  - Sopor [Unknown]
  - Bradycardia [Unknown]
  - Snoring [Unknown]
  - Dysphonia [Unknown]

NARRATIVE: CASE EVENT DATE: 20180808
